FAERS Safety Report 6741861-0 (Version None)
Quarter: 2010Q2

REPORT INFORMATION
  Report Type: 
  Country: None (occurrence: None)
  Receive Date: 20100526
  Receipt Date: 20100517
  Transmission Date: 20101027
  Serious: Yes (Hospitalization, Disabling)
  Sender: FDA-Public Use
  Company Number: A0786570A

PATIENT
  Age: 56 Year
  Sex: Male
  Weight: 122.7 kg

DRUGS (1)
  1. AVANDAMET [Suspect]
     Route: 048
     Dates: start: 20070412, end: 20070512

REACTIONS (2)
  - ASTHENIA [None]
  - CEREBROVASCULAR ACCIDENT [None]
